FAERS Safety Report 8956066 (Version 2)
Quarter: 2014Q2

REPORT INFORMATION
  Report Type: Spontaneous
  Country: US (occurrence: US)
  Receive Date: 20121210
  Receipt Date: 20131024
  Transmission Date: 20141212
  Serious: No
  Sender: FDA-Public Use
  Company Number: US-PFIZER INC-2012070168

PATIENT
  Sex: Female

DRUGS (2)
  1. ADVIL COLD AND SINUS [Suspect]
     Dosage: UNK
     Route: 048
  2. DEXTROMETHORPHAN HYDROBROMIDE\GUAIFENESIN [Interacting]
     Dosage: UNK
     Route: 065

REACTIONS (1)
  - Drug interaction [Unknown]
